FAERS Safety Report 8219708-5 (Version None)
Quarter: 2012Q1

REPORT INFORMATION
  Report Type: 
  Country: None (occurrence: None)
  Receive Date: 20120319
  Receipt Date: 20120307
  Transmission Date: 20120608
  Serious: Yes (Hospitalization)
  Sender: FDA-Public Use
  Company Number: US-ELI_LILLY_AND_COMPANY-US201203002365

PATIENT
  Sex: Female

DRUGS (10)
  1. CITRACAL [Concomitant]
  2. HYDROCHLOROTHIAZIDE [Concomitant]
     Dosage: 12.5 MG, UNK
  3. FORTEO [Suspect]
     Indication: OSTEOPOROSIS
     Dosage: 20 UG, QD
  4. ALPRAZOLAM [Concomitant]
     Dosage: 0.25 MG, UNK
  5. PRAVASTATIN [Concomitant]
     Dosage: 20 MG, UNK
  6. VITAMIN D [Concomitant]
  7. HYDROCODONE [Concomitant]
  8. CELEBREX [Concomitant]
     Dosage: 200 MG, UNK
  9. LEXAPRO [Concomitant]
     Dosage: 20 MG, UNK
  10. AGGRENOX [Concomitant]
     Dosage: UNK, BID

REACTIONS (2)
  - RIB FRACTURE [None]
  - FALL [None]
